FAERS Safety Report 5951637-X (Version None)
Quarter: 2008Q4

REPORT INFORMATION
  Report Type: 
  Country: None (occurrence: None)
  Receive Date: 20081113
  Receipt Date: 20081105
  Transmission Date: 20090506
  Serious: Yes (Life-Threatening)
  Sender: FDA-Public Use
  Company Number: GB-TEVA-180150ISR

PATIENT
  Age: 49 Year
  Sex: Male
  Weight: 107 kg

DRUGS (1)
  1. SERTRALINE [Suspect]
     Route: 048
     Dates: end: 20081010

REACTIONS (1)
  - PANCREATITIS HAEMORRHAGIC [None]
